FAERS Safety Report 16017138 (Version 2)
Quarter: 2019Q1

REPORT INFORMATION
  Report Type: Report from Study
  Country: CZ (occurrence: CZ)
  Receive Date: 20190228
  Receipt Date: 20190304
  Transmission Date: 20190418
  Serious: Yes (Hospitalization, Other)
  Sender: FDA-Public Use
  Company Number: CZ-PFIZER INC-2019083627

PATIENT
  Age: 66 Year
  Sex: Male

DRUGS (1)
  1. SUNITINIB MALATE. [Suspect]
     Active Substance: SUNITINIB MALATE
     Indication: METASTATIC RENAL CELL CARCINOMA
     Dosage: 50 MG, DAILY, 4 WEEKS ON, 2 WEEKS OFF
     Dates: start: 20180925

REACTIONS (9)
  - Cardiac failure [Unknown]
  - Disseminated intravascular coagulation [Recovered/Resolved]
  - Oedema peripheral [Recovered/Resolved]
  - Respiratory tract infection [Recovered/Resolved]
  - Rash [Recovered/Resolved]
  - Thrombocytopenia [Recovered/Resolved]
  - Palmar-plantar erythrodysaesthesia syndrome [Recovered/Resolved]
  - Hypertension [Recovered/Resolved]
  - Respiratory failure [Recovered/Resolved]

NARRATIVE: CASE EVENT DATE: 20190123
